FAERS Safety Report 4622170-2 (Version None)
Quarter: 2005Q1

REPORT INFORMATION
  Report Type: 
  Country: None (occurrence: None)
  Receive Date: 20050329
  Receipt Date: 20050316
  Transmission Date: 20050727
  Serious: Yes (Other)
  Sender: FDA-Public Use
  Company Number: 2005046333

PATIENT
  Age: 50 Year
  Sex: Female
  Weight: 65 kg

DRUGS (3)
  1. GABAPENTIN [Suspect]
     Indication: FIBROMYALGIA
     Dosage: 300 MG ORAL
     Route: 048
     Dates: start: 20041120
  2. VALERIANA OFFICINALIS [Concomitant]
  3. MELATONIN [Concomitant]

REACTIONS (4)
  - DYSPNOEA [None]
  - EAR PAIN [None]
  - NASAL CONGESTION [None]
  - SLEEP DISORDER [None]
